FAERS Safety Report 6903974-X (Version None)
Quarter: 2010Q3

REPORT INFORMATION
  Report Type: 
  Country: None (occurrence: None)
  Receive Date: 20100804
  Receipt Date: 20090204
  Transmission Date: 20110219
  Serious: Yes (Other)
  Sender: FDA-Public Use
  Company Number: US-PFIZER INC-2009166381

PATIENT
  Sex: Female
  Weight: 50.794 kg

DRUGS (3)
  1. LYRICA [Suspect]
     Indication: BACK PAIN
     Dates: start: 20080201, end: 20090101
  2. TRAMADOL [Concomitant]
  3. UNIPHYL [Concomitant]

REACTIONS (3)
  - FATIGUE [None]
  - PAIN [None]
  - VISION BLURRED [None]
